FAERS Safety Report 25181442 (Version 1)
Quarter: 2025Q2

REPORT INFORMATION
  Report Type: Spontaneous
  Country: JP (occurrence: JP)
  Receive Date: 20250410
  Receipt Date: 20250410
  Transmission Date: 20250717
  Serious: Yes (Other)
  Sender: GENMAB
  Company Number: JP-GENMAB-2024-03492

PATIENT
  Age: 84 Year
  Sex: Male
  Weight: 61.4 kg

DRUGS (3)
  1. EPKINLY [Suspect]
     Active Substance: EPCORITAMAB-BYSP
     Indication: Diffuse large B-cell lymphoma recurrent
     Route: 058
     Dates: start: 20240805, end: 20240805
  2. EPKINLY [Suspect]
     Active Substance: EPCORITAMAB-BYSP
     Route: 058
     Dates: start: 20240812, end: 20240812
  3. EPKINLY [Suspect]
     Active Substance: EPCORITAMAB-BYSP
     Route: 058
     Dates: start: 20240822

REACTIONS (6)
  - Cytomegalovirus enterocolitis [Unknown]
  - Cytomegalovirus gastritis [Unknown]
  - Diverticulitis [Unknown]
  - Pneumocystis jirovecii pneumonia [Unknown]
  - Cytokine release syndrome [Unknown]
  - Cytomegalovirus test positive [Not Recovered/Not Resolved]

NARRATIVE: CASE EVENT DATE: 20240101
